FAERS Safety Report 6604213-X (Version None)
Quarter: 2010Q1

REPORT INFORMATION
  Report Type: 
  Country: None (occurrence: None)
  Receive Date: 20100226
  Receipt Date: 20090717
  Transmission Date: 20100710
  Serious: Yes (Life-Threatening, Other)
  Sender: FDA-Public Use
  Company Number: A0795529A

PATIENT
  Age: 55 Year
  Sex: Female

DRUGS (3)
  1. LAMICTAL CD [Suspect]
     Indication: EPILEPSY
     Dosage: 50MGD PER DAY
     Route: 048
     Dates: start: 20090603, end: 20090622
  2. TOPAMAX [Concomitant]
  3. ANTICONVULSANT [Concomitant]

REACTIONS (8)
  - BURNING SENSATION [None]
  - EYE PRURITUS [None]
  - LIP SWELLING [None]
  - OCULAR HYPERAEMIA [None]
  - SKIN LESION [None]
  - SOMNOLENCE [None]
  - STEVENS-JOHNSON SYNDROME [None]
  - STOMATITIS [None]
